FAERS Safety Report 5525585-3 (Version None)
Quarter: 2007Q4

REPORT INFORMATION
  Report Type: 
  Country: None (occurrence: None)
  Receive Date: 20071126
  Receipt Date: 20071116
  Transmission Date: 20080405
  Serious: Yes (Hospitalization)
  Sender: FDA-Public Use
  Company Number: B0496821A

PATIENT
  Age: 81 Year
  Sex: Female

DRUGS (4)
  1. ARIXTRA [Suspect]
     Indication: PULMONARY EMBOLISM
     Dosage: 7.5MG PER DAY
     Route: 058
     Dates: start: 20071002, end: 20071001
  2. KARDEGIC [Concomitant]
  3. PLAVIX [Concomitant]
  4. INSULINE [Concomitant]

REACTIONS (6)
  - ARTERIAL THROMBOSIS [None]
  - CYANOSIS [None]
  - ERYTHEMA [None]
  - FOOT AMPUTATION [None]
  - PAIN IN EXTREMITY [None]
  - PERIPHERAL COLDNESS [None]
